FAERS Safety Report 9457203 (Version 2)
Quarter: 2013Q3

REPORT INFORMATION
  Report Type: Spontaneous
  Country: IL (occurrence: IL)
  Receive Date: 20130814
  Receipt Date: 20130819
  Transmission Date: 20140515
  Serious: Yes (Hospitalization)
  Sender: FDA-Public Use
  Company Number: IL-ASTRAZENECA-2013SE62532

PATIENT
  Age: 70 Year
  Sex: Male

DRUGS (3)
  1. BRILINTA [Suspect]
     Indication: ANGINA PECTORIS
     Route: 048
  2. FLAVIX [Concomitant]
  3. INSULIN [Concomitant]

REACTIONS (1)
  - Thrombosis in device [Unknown]
